FAERS Safety Report 10498481 (Version 1)
Quarter: 2014Q4

REPORT INFORMATION
  Report Type: Spontaneous
  Country: US (occurrence: None)
  Receive Date: 20141003
  Receipt Date: 20141003
  Transmission Date: 20150528
  Serious: No
  Sender: FDA-Public Use
  Company Number: None

PATIENT
  Age: 63 Year
  Weight: 88.45 kg

DRUGS (1)
  1. FOCALIN [Suspect]
     Active Substance: DEXMETHYLPHENIDATE HYDROCHLORIDE

REACTIONS (6)
  - Yawning [None]
  - Drug effect decreased [None]
  - Fatigue [None]
  - Disturbance in attention [None]
  - Product substitution issue [None]
  - Drug effect variable [None]

NARRATIVE: CASE EVENT DATE: 20141002
